FAERS Safety Report 21445948 (Version 1)
Quarter: 2022Q4

REPORT INFORMATION
  Report Type: Spontaneous
  Country: DK (occurrence: DK)
  Receive Date: 20221012
  Receipt Date: 20221012
  Transmission Date: 20230113
  Serious: Yes (Other)
  Sender: FDA-Public Use
  Company Number: DK-ELI_LILLY_AND_COMPANY-DK202210003119

PATIENT
  Age: 33 Year
  Sex: Male

DRUGS (8)
  1. ZYPREXA [Suspect]
     Active Substance: OLANZAPINE
     Indication: Psychotic disorder
     Dosage: 20 MG, DAILY
     Route: 048
     Dates: start: 2016, end: 2017
  2. ZYPREXA [Suspect]
     Active Substance: OLANZAPINE
     Dosage: 30 MG, DAILY
     Route: 048
     Dates: start: 2017, end: 2017
  3. ABILIFY MAINTENA [Suspect]
     Active Substance: ARIPIPRAZOLE
     Indication: Psychotic disorder
     Dosage: 400 MG, MONTHLY (1/M)
     Route: 065
     Dates: start: 2018, end: 201908
  4. ABILIFY MAINTENA [Suspect]
     Active Substance: ARIPIPRAZOLE
     Dosage: UNK UNK, UNKNOWN
     Route: 065
     Dates: start: 201911, end: 202012
  5. ABILIFY [Suspect]
     Active Substance: ARIPIPRAZOLE
     Indication: Psychotic disorder
     Dosage: 15 MG, DAILY
     Route: 065
     Dates: start: 201808, end: 2019
  6. ABILIFY [Suspect]
     Active Substance: ARIPIPRAZOLE
     Dosage: 30 MG, DAILY (SLOW GRADUAL DECREASE IN DOSE. IN NOV2019 DOSE INCREASED AGAIN)
     Route: 065
     Dates: start: 201908, end: 201911
  7. ZUCLOPENTHIXOL [Suspect]
     Active Substance: ZUCLOPENTHIXOL
     Indication: Psychotic disorder
     Dosage: 10 MG, DAILY
     Route: 065
     Dates: start: 2017, end: 201711
  8. ZUCLOPENTHIXOL [Suspect]
     Active Substance: ZUCLOPENTHIXOL
     Dosage: UNK UNK, UNKNOWN
     Route: 065
     Dates: start: 201711, end: 201808

REACTIONS (10)
  - Muscle tightness [Unknown]
  - Arrhythmia [Unknown]
  - Drooling [Unknown]
  - Breast disorder male [Unknown]
  - Bone marrow disorder [Unknown]
  - Tremor [Unknown]
  - Restlessness [Unknown]
  - Abdominal distension [Unknown]
  - Dyskinesia [Unknown]
  - Urinary retention [Unknown]
